FAERS Safety Report 16750709 (Version 2)
Quarter: 2019Q3

REPORT INFORMATION
  Report Type: Spontaneous
  Country: CN (occurrence: CN)
  Receive Date: 20190828
  Receipt Date: 20190912
  Transmission Date: 20191005
  Serious: Yes (Hospitalization)
  Sender: FDA-Public Use
  Company Number: CN-ASTRAZENECA-2019SF21028

PATIENT
  Age: 70 Year
  Sex: Female
  Weight: 55 kg

DRUGS (13)
  1. CLOPIDOGREL HYDROCHLORIDE [Concomitant]
     Active Substance: CLOPIDOGREL HYDROCHLORIDE
  2. ATORVASTATIN [Concomitant]
     Active Substance: ATORVASTATIN
     Indication: HYPOLIPIDAEMIA
     Dates: end: 20190817
  3. TAGRISSO [Suspect]
     Active Substance: OSIMERTINIB
     Indication: LUNG NEOPLASM MALIGNANT
     Route: 048
     Dates: start: 20190227
  4. TRADITIONAL CHINESE MEDICINE [Concomitant]
     Active Substance: HERBALS\HOMEOPATHICS
     Indication: CARDIAC DISORDER
  5. ATORVASTATIN [Concomitant]
     Active Substance: ATORVASTATIN
     Indication: CARDIOVASCULAR DISORDER
     Dates: end: 20190817
  6. TRADITIONAL CHINESE MEDICINE [Concomitant]
     Active Substance: HERBALS\HOMEOPATHICS
     Indication: EMBOLISM
  7. TRADITIONAL CHINESE MEDICINE [Concomitant]
     Active Substance: HERBALS\HOMEOPATHICS
     Indication: HYPERLIPIDAEMIA
  8. TRADITIONAL CHINESE MEDICINE [Concomitant]
     Active Substance: HERBALS\HOMEOPATHICS
     Indication: HYPERLIPIDAEMIA
  9. TAGRISSO [Suspect]
     Active Substance: OSIMERTINIB
     Indication: LUNG NEOPLASM MALIGNANT
     Dosage: REDUCED THE DOSAGE BY A HALF
     Route: 048
     Dates: start: 20190817
  10. TRADITIONAL CHINESE MEDICINE [Concomitant]
     Active Substance: HERBALS\HOMEOPATHICS
     Indication: CARDIAC DISORDER
  11. TRADITIONAL CHINESE MEDICINE [Concomitant]
     Active Substance: HERBALS\HOMEOPATHICS
     Indication: EMBOLISM
  12. TRIMETAZIDINE DIHYDROCHLORIDE [Concomitant]
     Active Substance: TRIMETAZIDINE DIHYDROCHLORIDE
  13. NICORANDIL [Concomitant]
     Active Substance: NICORANDIL

REACTIONS (3)
  - Cardiac discomfort [Not Recovered/Not Resolved]
  - Chest discomfort [Unknown]
  - Product use issue [Unknown]

NARRATIVE: CASE EVENT DATE: 20190807
